FAERS Safety Report 21938039 (Version 1)
Quarter: 2023Q1

REPORT INFORMATION
  Report Type: Report from Study
  Country: US (occurrence: US)
  Receive Date: 20230201
  Receipt Date: 20230201
  Transmission Date: 20230418
  Serious: No
  Sender: FDA-Public Use
  Company Number: US-INCYTE CORPORATION-2021IN007132

PATIENT

DRUGS (3)
  1. PEMIGATINIB [Suspect]
     Active Substance: PEMIGATINIB
     Indication: Bile duct cancer
     Dosage: 13.5 MILLIGRAM
     Route: 065
     Dates: start: 20210728
  2. PEMIGATINIB [Suspect]
     Active Substance: PEMIGATINIB
     Dosage: 13.5 MILLIGRAM, QD
     Route: 048
     Dates: start: 20210727
  3. ONDANSETRON [Suspect]
     Active Substance: ONDANSETRON
     Indication: Product used for unknown indication
     Route: 065

REACTIONS (6)
  - Cough [Unknown]
  - Ageusia [Unknown]
  - Blood electrolytes decreased [Unknown]
  - Blood phosphorus increased [Unknown]
  - Fatigue [Recovering/Resolving]
  - Nausea [Recovering/Resolving]
